FAERS Safety Report 8606060-6 (Version None)
Quarter: 2012Q3

REPORT INFORMATION
  Report Type: 
  Country: None (occurrence: None)
  Receive Date: 20120820
  Receipt Date: 20120112
  Transmission Date: 20120928
  Serious: Yes (Hospitalization, Other)
  Sender: FDA-Public Use
  Company Number: US-ROCHE-1100980

PATIENT
  Age: 52 Year
  Sex: Male

DRUGS (5)
  1. ACTIVASE [Suspect]
     Indication: ACUTE MYOCARDIAL INFARCTION
  2. NITROGLYCERIN SUBLINGUAL [Concomitant]
     Route: 060
  3. HEPARIN [Concomitant]
  4. NITROGLYCERIN [Concomitant]
     Route: 041
  5. MORPHINE SULFATE [Concomitant]
     Dosage: IVP

REACTIONS (4)
  - CHEST PAIN [None]
  - CARDIAC ARREST [None]
  - VENTRICULAR FIBRILLATION [None]
  - POSTINFARCTION ANGINA [None]
